FAERS Safety Report 8870873 (Version 1)
Quarter: 2012Q4

REPORT INFORMATION
  Report Type: Spontaneous
  Country: US (occurrence: None)
  Receive Date: 20121026
  Receipt Date: 20121026
  Transmission Date: 20130627
  Serious: Yes (Life-Threatening, Hospitalization)
  Sender: FDA-Public Use
  Company Number: None

PATIENT
  Age: 81 Year
  Sex: Female
  Weight: 68.03 kg

DRUGS (1)
  1. XARELTO [Suspect]
     Route: 048
     Dates: start: 20121016, end: 20121018

REACTIONS (3)
  - Pulmonary embolism [None]
  - Haemoglobin decreased [None]
  - Haematocrit decreased [None]
